FAERS Safety Report 10668484 (Version 5)
Quarter: 2015Q3

REPORT INFORMATION
  Report Type: Report from Study
  Country: US (occurrence: US)
  Receive Date: 20141222
  Receipt Date: 20150810
  Transmission Date: 20151125
  Serious: Yes (Other)
  Sender: FDA-Public Use
  Company Number: US-SA-2014SA155574

PATIENT
  Age: 76 Year
  Sex: Female

DRUGS (1)
  1. AUBAGIO [Suspect]
     Active Substance: TERIFLUNOMIDE
     Indication: MULTIPLE SCLEROSIS
     Route: 048
     Dates: start: 20141106, end: 2015

REACTIONS (9)
  - Spinal cord compression [Unknown]
  - Back pain [Unknown]
  - Thyroid neoplasm [Unknown]
  - Hypertension [Unknown]
  - Alopecia [Unknown]
  - Eye swelling [Not Recovered/Not Resolved]
  - Weight decreased [Unknown]
  - Thyroid hormones increased [Recovered/Resolved]
  - Constipation [Not Recovered/Not Resolved]

NARRATIVE: CASE EVENT DATE: 201412
